FAERS Safety Report 13256731 (Version 1)
Quarter: 2017Q1

REPORT INFORMATION
  Report Type: Spontaneous
  Country: US (occurrence: US)
  Receive Date: 20170221
  Receipt Date: 20170221
  Transmission Date: 20170428
  Serious: Yes (Disabling)
  Sender: FDA-Public Use
  Company Number: None

PATIENT
  Age: 10 Year
  Sex: Male
  Weight: 70.65 kg

DRUGS (6)
  1. COCONUT OIL [Concomitant]
     Active Substance: COCONUT OIL
  2. MIRALAX [Suspect]
     Active Substance: POLYETHYLENE GLYCOL 3350
     Indication: CONSTIPATION
     Dosage: ?          QUANTITY:1 CAP MEASURE;?
     Route: 048
  3. CHLORELLA PILLS [Concomitant]
  4. PROBIOTICS [Concomitant]
     Active Substance: PROBIOTICS NOS
  5. VITAMIN C [Concomitant]
     Active Substance: ASCORBIC ACID
  6. VITAMIN A [Concomitant]
     Active Substance: VITAMIN A

REACTIONS (6)
  - Paranoia [None]
  - Anger [None]
  - Emotional disorder [None]
  - Anxiety [None]
  - Sleep disorder [None]
  - Disinhibition [None]

NARRATIVE: CASE EVENT DATE: 20130515
